FAERS Safety Report 19668463 (Version 1)
Quarter: 2021Q3

REPORT INFORMATION
  Report Type: Report from Study
  Country: US (occurrence: US)
  Receive Date: 20210806
  Receipt Date: 20210806
  Transmission Date: 20211014
  Serious: Yes (Other)
  Sender: FDA-Public Use
  Company Number: US-MYLANLABS-2021M1049622

PATIENT
  Age: 47 Year
  Sex: Female

DRUGS (6)
  1. FLUOROURACIL. [Suspect]
     Active Substance: FLUOROURACIL
     Indication: GALLBLADDER ADENOCARCINOMA
     Dosage: RECEIVED 8 CYCLES
     Route: 065
  2. CISPLATIN. [Suspect]
     Active Substance: CISPLATIN
     Indication: GALLBLADDER ADENOCARCINOMA
     Dosage: RECEIVED 8 CYCLES
     Route: 065
  3. IRINOTECAN HYDROCHLORIDE. [Suspect]
     Active Substance: IRINOTECAN HYDROCHLORIDE
     Indication: GALLBLADDER ADENOCARCINOMA
     Dosage: RECEIVED 8 CYCLES
     Route: 065
  4. LEUCOVORIN CALCIUM. [Suspect]
     Active Substance: LEUCOVORIN CALCIUM
     Indication: GALLBLADDER ADENOCARCINOMA
     Dosage: RECEIVED 8 CYCLES
     Route: 065
  5. GEMCITABINE. [Suspect]
     Active Substance: GEMCITABINE
     Indication: GALLBLADDER ADENOCARCINOMA
     Dosage: RECEIVED 8 CYCLES
     Route: 065
  6. BEVACIZUMAB. [Suspect]
     Active Substance: BEVACIZUMAB
     Indication: GALLBLADDER ADENOCARCINOMA
     Dosage: RECEIVED 8 CYCLES
     Route: 065

REACTIONS (1)
  - Drug ineffective [Unknown]
